FAERS Safety Report 8484935-9 (Version None)
Quarter: 2012Q3

REPORT INFORMATION
  Report Type: 
  Country: None (occurrence: None)
  Receive Date: 20120703
  Receipt Date: 20120628
  Transmission Date: 20120928
  Serious: Yes (Death)
  Sender: FDA-Public Use
  Company Number: US-ASTELLAS-2012US005858

PATIENT
  Sex: Female

DRUGS (1)
  1. PROGRAF [Suspect]
     Indication: LUNG TRANSPLANT
     Dosage: 1 MG IN AM/ 1.5 MG IN PM
     Route: 048
     Dates: start: 20080307, end: 20120507

REACTIONS (2)
  - OFF LABEL USE [None]
  - DEATH [None]
